FAERS Safety Report 13188457 (Version 1)
Quarter: 2017Q1

REPORT INFORMATION
  Report Type: Spontaneous
  Country: US (occurrence: US)
  Receive Date: 20170203
  Receipt Date: 20170203
  Transmission Date: 20170428
  Serious: Yes (Life-Threatening, Disabling, Other)
  Sender: FDA-Public Use
  Company Number: None

PATIENT
  Age: 45 Year
  Sex: Female
  Weight: 80.1 kg

DRUGS (2)
  1. CONTRAVE [Suspect]
     Active Substance: BUPROPION HYDROCHLORIDE\NALTREXONE HYDROCHLORIDE
     Indication: OBESITY
     Route: 048
     Dates: start: 20170109, end: 20170202
  2. VITAMIN D [Concomitant]
     Active Substance: CHOLECALCIFEROL

REACTIONS (10)
  - Dysphagia [None]
  - Impaired work ability [None]
  - Pruritus [None]
  - Blood pressure increased [None]
  - Tongue ulceration [None]
  - Feeling hot [None]
  - Urticaria [None]
  - Erythema [None]
  - Thirst [None]
  - Heart rate increased [None]

NARRATIVE: CASE EVENT DATE: 20170201
